FAERS Safety Report 6300962-1 (Version None)
Quarter: 2009Q3

REPORT INFORMATION
  Report Type: 
  Country: None (occurrence: None)
  Receive Date: 20090806
  Receipt Date: 20090806
  Transmission Date: 20100115
  Serious: Yes (Disabling, Other)
  Sender: FDA-Public Use
  Company Number: None

PATIENT
  Age: 51 Year
  Sex: Female
  Weight: 117.9352 kg

DRUGS (2)
  1. ZICAM NASAL SPRAY ONCE NASAL [Suspect]
     Indication: INFLUENZA
     Dosage: NASAL SPRAY ONCE NASAL
     Route: 045
     Dates: start: 20090215
  2. ZICAM NASAL SPRAY ONCE NASAL [Suspect]
     Indication: NASOPHARYNGITIS
     Dosage: NASAL SPRAY ONCE NASAL
     Route: 045
     Dates: start: 20090215

REACTIONS (3)
  - AGEUSIA [None]
  - ANOSMIA [None]
  - BURNING SENSATION [None]
